FAERS Safety Report 7373434-3 (Version None)
Quarter: 2011Q1

REPORT INFORMATION
  Report Type: 
  Country: None (occurrence: None)
  Receive Date: 20110325
  Receipt Date: 20110316
  Transmission Date: 20110831
  Serious: Yes (Congenital Anomaly)
  Sender: FDA-Public Use
  Company Number: DE-BIOGENIDEC-2011BI009595

PATIENT
  Age: 0 Year
  Sex: Female

DRUGS (1)
  1. TYSABRI [Suspect]
     Indication: DRUG EXPOSURE DURING PREGNANCY
     Dosage: GESTATIONAL PERIOD OF EXPOSURE UNKNOWN
     Route: 064
     Dates: start: 20100423, end: 20101217

REACTIONS (6)
  - HETEROTAXIA [None]
  - CONGENITAL CYST [None]
  - MATERNAL DRUGS AFFECTING FOETUS [None]
  - CARDIAC SEPTAL DEFECT [None]
  - PERSISTENT LEFT SUPERIOR VENA CAVA [None]
  - ATRIOVENTRICULAR SEPTAL DEFECT [None]
